FAERS Safety Report 9456283 (Version 2)
Quarter: 2013Q4

REPORT INFORMATION
  Report Type: Spontaneous
  Country: US (occurrence: US)
  Receive Date: 20130813
  Receipt Date: 20131004
  Transmission Date: 20140711
  Serious: Yes (Other)
  Sender: FDA-Public Use
  Company Number: US-GLAXOSMITHKLINE-A1036459A

PATIENT
  Age: 8 Month
  Sex: Male

DRUGS (3)
  1. ALTABAX [Suspect]
     Indication: PRODUCT USED FOR UNKNOWN INDICATION
     Dosage: 1APP TWICE PER DAY
     Route: 061
     Dates: start: 20130215
  2. CEPHALEXIN [Concomitant]
  3. KETOCONAZOLE [Concomitant]

REACTIONS (2)
  - Drug ineffective [Unknown]
  - Off label use [Unknown]
